FAERS Safety Report 15150973 (Version 3)
Quarter: 2021Q2

REPORT INFORMATION
  Report Type: Spontaneous
  Country: US (occurrence: US)
  Receive Date: 20180716
  Receipt Date: 20210604
  Transmission Date: 20210716
  Serious: Yes (Other)
  Sender: FDA-Public Use
  Company Number: US-SA-2018SA183994

PATIENT
  Sex: Male
  Weight: 120.18 kg

DRUGS (6)
  1. OMEPRAZOLE. [Concomitant]
     Active Substance: OMEPRAZOLE
     Dosage: UNK
     Route: 065
  2. DUPIXENT [Suspect]
     Active Substance: DUPILUMAB
     Dosage: 300 MG, QOW
     Route: 058
     Dates: start: 201805
  3. JANUVIA [Concomitant]
     Active Substance: SITAGLIPTIN PHOSPHATE
     Dosage: UNK
     Route: 065
  4. LISINOPRIL. [Concomitant]
     Active Substance: LISINOPRIL
     Dosage: UNK
     Route: 065
  5. GABAPENTIN. [Concomitant]
     Active Substance: GABAPENTIN
     Dosage: UNK
     Route: 065
  6. DUPIXENT [Suspect]
     Active Substance: DUPILUMAB
     Indication: DERMATITIS ATOPIC
     Dosage: 1 DF, QOW
     Route: 058

REACTIONS (12)
  - Swelling [Unknown]
  - Pruritus [Unknown]
  - Erythema [Unknown]
  - Blister [Unknown]
  - Rash [Unknown]
  - Helicobacter infection [Unknown]
  - Headache [Unknown]
  - Eye pain [Unknown]
  - Skin texture abnormal [Unknown]
  - Sleep disorder [Unknown]
  - Dry skin [Unknown]
  - Myalgia [Unknown]
